FAERS Safety Report 9261805 (Version 1)
Quarter: 2013Q2

REPORT INFORMATION
  Report Type: Spontaneous
  Country: CH (occurrence: CH)
  Receive Date: 20130429
  Receipt Date: 20130429
  Transmission Date: 20140414
  Serious: Yes (Death, Life-Threatening, Hospitalization)
  Sender: FDA-Public Use
  Company Number: CH-B.I. PHARMACEUTICALS,INC./RIDGEFIELD-2013-AP-00328SI

PATIENT
  Age: 68 Year
  Sex: Female

DRUGS (8)
  1. PRADAXA [Suspect]
     Indication: ATRIAL FIBRILLATION
     Dosage: 300 MG
     Route: 048
     Dates: end: 20130415
  2. PRADAXA [Suspect]
     Indication: ATRIAL FLUTTER
  3. BYSTOLIC [Suspect]
     Indication: ATRIAL FIBRILLATION
     Dosage: 5 MG
     Route: 048
  4. BYSTOLIC [Suspect]
     Indication: ATRIAL FLUTTER
  5. PROPAFENONE [Concomitant]
     Indication: ATRIAL FIBRILLATION
     Dosage: 325 MG
     Route: 048
  6. PROPAFENONE [Concomitant]
     Indication: ATRIAL FLUTTER
  7. HYDROCHLOROTHIAZIDE [Concomitant]
     Indication: ESSENTIAL HYPERTENSION
     Dosage: 25 MG
     Route: 048
  8. HYDROCHLOROTHIAZIDE [Concomitant]
     Indication: ESSENTIAL HYPERTENSION

REACTIONS (4)
  - Intra-abdominal haemorrhage [Fatal]
  - Therapeutic response increased [Fatal]
  - Renal failure [Fatal]
  - Circulatory collapse [Fatal]
